FAERS Safety Report 24243960 (Version 2)
Quarter: 2024Q3

REPORT INFORMATION
  Report Type: Spontaneous
  Country: JP (occurrence: JP)
  Receive Date: 20240823
  Receipt Date: 20240916
  Transmission Date: 20241016
  Serious: Yes (Other)
  Sender: TAKEDA
  Company Number: JP-TAKEDA-2024TUS085149

PATIENT
  Age: 15 Year
  Sex: Male

DRUGS (3)
  1. MIDODRINE HYDROCHLORIDE [Suspect]
     Active Substance: MIDODRINE HYDROCHLORIDE
     Indication: Product used for unknown indication
     Dosage: 2 MILLIGRAM, BID
     Route: 048
     Dates: start: 20240701
  2. ARIPIPRAZOLE [Suspect]
     Active Substance: ARIPIPRAZOLE
     Indication: Product used for unknown indication
     Dosage: UNK
     Route: 048
  3. THIOLA [Concomitant]
     Active Substance: TIOPRONIN
     Dosage: UNK

REACTIONS (1)
  - Oculogyric crisis [Recovering/Resolving]

NARRATIVE: CASE EVENT DATE: 20240801
